FAERS Safety Report 14848391 (Version 2)
Quarter: 2018Q2

REPORT INFORMATION
  Report Type: Spontaneous
  Country: GB (occurrence: GB)
  Receive Date: 20180504
  Receipt Date: 20180521
  Transmission Date: 20180711
  Serious: Yes (Disabling)
  Sender: FDA-Public Use
  Company Number: GB-PERRIGO-18GB004844

PATIENT
  Age: 51 Year
  Sex: Female
  Weight: 59 kg

DRUGS (4)
  1. AVAMYS [Concomitant]
     Active Substance: FLUTICASONE FUROATE
  2. AVAMYS [Concomitant]
     Active Substance: FLUTICASONE FUROATE
     Indication: PRODUCT USED FOR UNKNOWN INDICATION
  3. CETIRIZINE HYDROCHLORIDE. [Suspect]
     Active Substance: CETIRIZINE HYDROCHLORIDE
     Indication: RHINITIS ALLERGIC
     Dosage: 1 DF, QD
     Route: 048
     Dates: start: 20170101, end: 20180201
  4. IBUPROFEN. [Concomitant]
     Active Substance: IBUPROFEN
     Indication: RHINITIS ALLERGIC

REACTIONS (4)
  - Hunger [Recovered/Resolved]
  - Urinary incontinence [Recovered/Resolved]
  - Abdominal pain [Recovered/Resolved]
  - Somnolence [Recovered/Resolved]

NARRATIVE: CASE EVENT DATE: 20170101
